FAERS Safety Report 4392438-6 (Version None)
Quarter: 2004Q3

REPORT INFORMATION
  Report Type: 
  Country: None (occurrence: None)
  Receive Date: 20040702
  Receipt Date: 20040310
  Transmission Date: 20050211
  Serious: Yes (Other)
  Sender: FDA-Public Use
  Company Number: 2004UW04569

PATIENT
  Age: 78 Year
  Sex: Female

DRUGS (1)
  1. CRESTOR [Suspect]
     Dosage: `10 MG PO
     Route: 048
     Dates: start: 20040301

REACTIONS (7)
  - COLD SWEAT [None]
  - FEELING HOT AND COLD [None]
  - HEADACHE [None]
  - ORAL PAIN [None]
  - RASH [None]
  - STOMACH DISCOMFORT [None]
  - STOMATITIS [None]
